FAERS Safety Report 8392108-3 (Version None)
Quarter: 2012Q2

REPORT INFORMATION
  Report Type: 
  Country: None (occurrence: None)
  Receive Date: 20120529
  Receipt Date: 20120515
  Transmission Date: 20120825
  Serious: Yes (Disabling)
  Sender: FDA-Public Use
  Company Number: US-CELGENEUS-163-21880-11062288

PATIENT
  Sex: Female
  Weight: 61.744 kg

DRUGS (27)
  1. VITAMIN E [Concomitant]
     Indication: SUPPLEMENTATION THERAPY
     Dosage: 200 IU (INTERNATIONAL UNIT)
     Route: 048
     Dates: start: 20080717
  2. ALOXI [Concomitant]
     Dosage: .125 MILLIGRAM
     Route: 041
     Dates: start: 20090923
  3. VENOFER [Concomitant]
     Indication: IRON DEFICIENCY
     Dosage: 200 MILLIGRAM
     Route: 041
     Dates: start: 20090925
  4. NEUMEGA [Concomitant]
     Indication: THROMBOCYTOPENIA
     Dosage: 2.5 MILLIGRAM
     Route: 058
     Dates: start: 20090724
  5. REVLIMID [Suspect]
     Indication: MULTIPLE MYELOMA
     Dosage: 25 MILLIGRAM
     Route: 048
     Dates: start: 20090709, end: 20100207
  6. WARFARIN SODIUM [Concomitant]
     Dosage: 4 MILLIGRAM
     Route: 048
     Dates: start: 20090803
  7. PROCRIT [Concomitant]
     Dosage: 30,000 IU
     Route: 040
     Dates: start: 20090716
  8. VASOTEC [Concomitant]
     Indication: HYPERTENSION
     Dosage: 10 MILLIGRAM
     Route: 065
     Dates: start: 20100701
  9. WARFARIN SODIUM [Concomitant]
     Indication: ANTICOAGULANT THERAPY
     Dosage: 3 MILLIGRAM
     Route: 048
     Dates: start: 20001102
  10. SOLU-MEDROL [Concomitant]
     Indication: ANAPHYLAXIS PROPHYLAXIS
     Dosage: 50 MILLIGRAM
     Route: 041
     Dates: start: 20090925
  11. ARIXTRA [Concomitant]
     Indication: ANTICOAGULANT THERAPY
     Dosage: 10 MILLIGRAM
     Route: 048
     Dates: start: 20090803
  12. PROCRIT [Concomitant]
     Dosage: 20,000 IU
     Route: 040
     Dates: start: 20090710
  13. PROCRIT [Concomitant]
     Dosage: 40,000 IU
     Route: 040
     Dates: start: 20090722
  14. PROCRIT [Concomitant]
     Dosage: 10,000 IU
     Route: 058
     Dates: start: 20090724
  15. ALOXI [Concomitant]
     Indication: PROPHYLAXIS
     Dosage: .25 MILLIGRAM
     Dates: start: 20090630
  16. WARFARIN SODIUM [Concomitant]
     Dosage: 1 MILLIGRAM
     Route: 048
     Dates: start: 20020101, end: 20100128
  17. WARFARIN SODIUM [Concomitant]
     Dosage: 2 MILLIGRAM
     Route: 048
     Dates: start: 20100128
  18. XANAX [Concomitant]
     Indication: ANXIETY
     Dosage: .25 MILLIGRAM
     Route: 048
     Dates: start: 20100704
  19. NEXIUM [Concomitant]
     Dosage: 40 MILLIGRAM
     Route: 048
     Dates: start: 20090710
  20. NEUPOGEN [Concomitant]
     Indication: NEUTROPENIA
     Dosage: 350 MILLIGRAM
     Route: 058
     Dates: start: 20090622
  21. NORVASC [Concomitant]
     Indication: HYPERTENSION
     Dosage: 5 MILLIGRAM
     Route: 065
     Dates: start: 20100701
  22. VALACYCLOVIR HYDROCHLORIDE [Concomitant]
     Dosage: 500 MILLIGRAM
     Route: 048
     Dates: start: 20090709
  23. CARFILZOMIB [Suspect]
     Indication: MULTIPLE MYELOMA
     Dosage: 20 MILLIGRAM/SQ. METER
     Route: 041
     Dates: start: 20090709, end: 20100122
  24. ATIVAN [Concomitant]
     Indication: SINUS TACHYCARDIA
     Route: 065
     Dates: start: 20100701
  25. RESTORIL [Concomitant]
     Indication: SLEEP DISORDER
     Dosage: 15 MILLIGRAM
     Route: 048
     Dates: start: 20090724
  26. IMODIUM [Concomitant]
     Dosage: 1 TABLET
     Route: 048
     Dates: start: 20090801
  27. BENADRYL [Concomitant]
     Indication: ANAPHYLAXIS PROPHYLAXIS
     Dosage: 25 MILLIGRAM
     Route: 041
     Dates: start: 20090828

REACTIONS (1)
  - MALIGNANT MELANOMA [None]
